FAERS Safety Report 4973103-0 (Version None)
Quarter: 2006Q2

REPORT INFORMATION
  Report Type: 
  Country: None (occurrence: None)
  Receive Date: 20060414
  Receipt Date: 20050829
  Transmission Date: 20061013
  Serious: Yes (Death, Hospitalization)
  Sender: FDA-Public Use
  Company Number: US-MERCK-0508USA04642

PATIENT
  Age: 74 Year
  Sex: Female

DRUGS (11)
  1. VIOXX [Suspect]
     Indication: ARTHRALGIA
     Route: 048
     Dates: start: 19990609, end: 19991019
  2. VIOXX [Suspect]
     Route: 048
     Dates: start: 19991020, end: 20000801
  3. VIOXX [Suspect]
     Route: 048
     Dates: start: 20000802, end: 20030119
  4. VIOXX [Suspect]
     Indication: OSTEOARTHRITIS
     Route: 048
     Dates: start: 19990609, end: 19991019
  5. VIOXX [Suspect]
     Route: 048
     Dates: start: 19991020, end: 20000801
  6. VIOXX [Suspect]
     Route: 048
     Dates: start: 20000802, end: 20030119
  7. PLAVIX [Concomitant]
     Route: 048
  8. GLUCOPHAGE [Concomitant]
     Route: 048
  9. PROCARDIA XL [Concomitant]
     Route: 048
  10. DIABETA [Concomitant]
     Route: 048
  11. CLARITIN [Concomitant]
     Route: 048

REACTIONS (24)
  - ACUTE CORONARY SYNDROME [None]
  - BLOOD CREATININE INCREASED [None]
  - BLOOD PRESSURE INCREASED [None]
  - CANDIDIASIS [None]
  - CARDIAC FAILURE CONGESTIVE [None]
  - CARDIOGENIC SHOCK [None]
  - CELLULITIS [None]
  - CORONARY ARTERY STENOSIS [None]
  - CORONARY OSTIAL STENOSIS [None]
  - FUNGAL RASH [None]
  - FUNGAL SKIN INFECTION [None]
  - HERPES SIMPLEX OPHTHALMIC [None]
  - HYPERSENSITIVITY [None]
  - INGUINAL HERNIA [None]
  - MYOCARDIAL INFARCTION [None]
  - NEPHROPATHY [None]
  - PULMONARY OEDEMA [None]
  - RESPIRATORY DISORDER [None]
  - RESPIRATORY DISTRESS [None]
  - SINUSITIS [None]
  - SWELLING [None]
  - UPPER RESPIRATORY TRACT INFECTION [None]
  - VENTRICULAR FIBRILLATION [None]
  - VENTRICULAR TACHYCARDIA [None]
